FAERS Safety Report 17998954 (Version 1)
Quarter: 2020Q3

REPORT INFORMATION
  Report Type: Spontaneous
  Country: US (occurrence: US)
  Receive Date: 20200708
  Receipt Date: 20200708
  Transmission Date: 20201103
  Serious: Yes (Hospitalization)
  Sender: FDA-Public Use
  Company Number: None

PATIENT
  Age: 69 Year
  Sex: Male

DRUGS (2)
  1. DULOXETINE (DULOXETINE HCL 20MG CAP, EC) [Suspect]
     Active Substance: DULOXETINE HYDROCHLORIDE
     Indication: DEPRESSION
     Dosage: ?          OTHER FREQUENCY:AM;?
     Route: 048
     Dates: start: 20190206, end: 20190509
  2. DULOXETINE (DULOXETINE HCL 20MG CAP, EC) [Suspect]
     Active Substance: DULOXETINE HYDROCHLORIDE
     Indication: GENERALISED ANXIETY DISORDER
     Dosage: ?          OTHER FREQUENCY:AM;?
     Route: 048
     Dates: start: 20190206, end: 20190509

REACTIONS (1)
  - Seizure [None]

NARRATIVE: CASE EVENT DATE: 20190509
